FAERS Safety Report 4888014-9 (Version None)
Quarter: 2006Q1

REPORT INFORMATION
  Report Type: 
  Country: None (occurrence: None)
  Receive Date: 20060123
  Receipt Date: 20051001
  Transmission Date: 20060701
  Serious: Yes (Hospitalization, Other)
  Sender: FDA-Public Use
  Company Number: US-MERCK-0510USA01826

PATIENT
  Age: 54 Year
  Sex: Male

DRUGS (1)
  1. VIOXX [Suspect]
     Route: 048

REACTIONS (13)
  - ANGINA PECTORIS [None]
  - ANGIOPATHY [None]
  - ARRHYTHMIA [None]
  - CARDIOVASCULAR DISORDER [None]
  - DIABETES MELLITUS NON-INSULIN-DEPENDENT [None]
  - ESSENTIAL HYPERTENSION [None]
  - ISCHAEMIC CEREBRAL INFARCTION [None]
  - MITRAL VALVE PROLAPSE [None]
  - MYOCARDIAL INFARCTION [None]
  - ORGAN FAILURE [None]
  - PULMONARY EMBOLISM [None]
  - SINUSITIS [None]
  - THROMBOSIS [None]
